FAERS Safety Report 9339966 (Version 1)
Quarter: 2013Q2

REPORT INFORMATION
  Report Type: Spontaneous
  Country: US (occurrence: None)
  Receive Date: 20130607
  Receipt Date: 20130607
  Transmission Date: 20140414
  Serious: No
  Sender: FDA-Public Use
  Company Number: None

PATIENT
  Sex: Female

DRUGS (1)
  1. HUMIRA [Suspect]
     Dosage: 160MG ON DAY 1, 80MG ON DAY 15, EVERY OTHER WEEK SUBQ
     Route: 058
     Dates: start: 20130409, end: 20130605

REACTIONS (1)
  - Injection site pain [None]
